FAERS Safety Report 16974944 (Version 1)
Quarter: 2019Q4

REPORT INFORMATION
  Report Type: Spontaneous
  Country: US (occurrence: US)
  Receive Date: 20191030
  Receipt Date: 20191030
  Transmission Date: 20200122
  Serious: Yes (Other)
  Sender: FDA-Public Use
  Company Number: US-AMGEN-USASP2019177109

PATIENT
  Age: 72 Year
  Sex: Female

DRUGS (2)
  1. ENBREL [Suspect]
     Active Substance: ETANERCEPT
     Indication: PSORIASIS
     Dosage: UNK
     Route: 065
     Dates: start: 2013
  2. ENBREL [Suspect]
     Active Substance: ETANERCEPT
     Dosage: UNK, ONCE EVERY 4, 5, OR 6 MONTHS
     Route: 065
     Dates: end: 20180717

REACTIONS (5)
  - Off label use [Unknown]
  - Infection [Unknown]
  - Psoriasis [Not Recovered/Not Resolved]
  - Cholelithiasis [Unknown]
  - Atrial fibrillation [Unknown]

NARRATIVE: CASE EVENT DATE: 201904
